FAERS Safety Report 5685100-0 (Version None)
Quarter: 2008Q1

REPORT INFORMATION
  Report Type: 
  Country: None (occurrence: None)
  Receive Date: 20080328
  Receipt Date: 20080317
  Transmission Date: 20080703
  Serious: Yes (Hospitalization, Other)
  Sender: FDA-Public Use
  Company Number: US-PFIZER INC-2006124600

PATIENT
  Sex: Female
  Weight: 128.8 kg

DRUGS (29)
  1. CHANTIX [Suspect]
     Indication: SMOKING CESSATION THERAPY
  2. PREDNISONE TAB [Suspect]
     Indication: BRONCHITIS CHRONIC
  3. THEOPHYLLINE [Concomitant]
  4. GLUCOVANCE [Concomitant]
  5. AMARYL [Concomitant]
  6. LUNESTA [Concomitant]
  7. ATIVAN [Concomitant]
     Indication: DEPRESSION
  8. SEROQUEL [Concomitant]
  9. EFFEXOR [Concomitant]
  10. MONOPRIL [Concomitant]
  11. COREG [Concomitant]
     Indication: BLOOD PRESSURE
  12. POTASSIUM CHLORIDE [Concomitant]
  13. FLEXERIL [Concomitant]
  14. ULTRAM [Concomitant]
  15. DEMADEX [Concomitant]
  16. MONTELUKAST SODIUM [Concomitant]
  17. ADVAIR DISKUS 100/50 [Concomitant]
  18. ACETYLSALICYLIC ACID SRT [Concomitant]
  19. OXYGEN [Concomitant]
  20. LASIX [Concomitant]
  21. NORVASC [Concomitant]
     Indication: BLOOD PRESSURE
  22. ZANAFLEX [Concomitant]
  23. MECLIZINE [Concomitant]
  24. BENTYL [Concomitant]
  25. SYNTHROID [Concomitant]
  26. REQUIP [Concomitant]
  27. PROTONIX [Concomitant]
  28. ALBUTEROL [Concomitant]
  29. TOPAMAX [Concomitant]

REACTIONS (3)
  - BRONCHITIS CHRONIC [None]
  - CHRONIC OBSTRUCTIVE PULMONARY DISEASE [None]
  - WHITE BLOOD CELL COUNT INCREASED [None]
